FAERS Safety Report 4923508-9 (Version None)
Quarter: 2006Q1

REPORT INFORMATION
  Report Type: 
  Country: None (occurrence: None)
  Receive Date: 20060227
  Receipt Date: 20060215
  Transmission Date: 20060701
  Serious: Yes (Hospitalization)
  Sender: FDA-Public Use
  Company Number: 2006AC00268

PATIENT
  Age: 29519 Day
  Sex: Male
  Weight: 80 kg

DRUGS (3)
  1. ZOLADEX [Suspect]
     Indication: PROSTATE CANCER
     Route: 058
     Dates: start: 20050127
  2. CASODEX [Concomitant]
     Dates: start: 20050127, end: 20050527
  3. DIXARIT [Concomitant]
     Dates: start: 20050311, end: 20050421

REACTIONS (1)
  - PSYCHOTIC DISORDER [None]
